FAERS Safety Report 13932347 (Version 1)
Quarter: 2017Q3

REPORT INFORMATION
  Report Type: Spontaneous
  Country: JP (occurrence: JP)
  Receive Date: 20170904
  Receipt Date: 20170904
  Transmission Date: 20171127
  Serious: Yes (Hospitalization, Other)
  Sender: FDA-Public Use
  Company Number: JP-ROCHE-1985293

PATIENT
  Age: 76 Year
  Sex: Female
  Weight: 42 kg

DRUGS (8)
  1. PARIET [Concomitant]
     Active Substance: RABEPRAZOLE SODIUM
     Dosage: DOSAGE IS UNCERTAIN.
     Route: 065
  2. BUFFERIN A (JAPAN) [Concomitant]
     Dosage: DOSAGE IS UNCERTAIN.
     Route: 048
  3. RIMATIL [Concomitant]
     Active Substance: BUCILLAMINE
     Dosage: DOSAGE IS UNCERTAIN.
     Route: 065
  4. PREDNISOLONE. [Concomitant]
     Active Substance: PREDNISOLONE
     Dosage: DOSAGE IS UNCERTAIN.
     Route: 065
  5. AMLODIPINE [Concomitant]
     Active Substance: AMLODIPINE BESYLATE
     Dosage: DOSAGE IS UNCERTAIN.
     Route: 065
  6. ALFACALCIDOL [Concomitant]
     Active Substance: ALFACALCIDOL
     Dosage: DOSAGE IS UNCERTAIN.
     Route: 065
  7. ACTEMRA [Suspect]
     Active Substance: TOCILIZUMAB
     Indication: RHEUMATOID ARTHRITIS
     Route: 058
     Dates: start: 20170509, end: 20170620
  8. CELECOX [Concomitant]
     Active Substance: CELECOXIB

REACTIONS (3)
  - Melaena [Recovered/Resolved]
  - Diverticulum intestinal [Unknown]
  - Diverticulum intestinal haemorrhagic [Recovered/Resolved]

NARRATIVE: CASE EVENT DATE: 20170625
